FAERS Safety Report 9850558 (Version 1)
Quarter: 2014Q1

REPORT INFORMATION
  Report Type: Spontaneous
  Country: FI (occurrence: FI)
  Receive Date: 20140128
  Receipt Date: 20140128
  Transmission Date: 20141002
  Serious: Yes (Other)
  Sender: FDA-Public Use
  Company Number: FI-ASTRAZENECA-2014SE05464

PATIENT
  Age: 30439 Day
  Sex: Male

DRUGS (1)
  1. BRILIQUE [Suspect]
     Indication: CORONARY ARTERY DISEASE
     Route: 048
     Dates: start: 20140111, end: 20140114

REACTIONS (2)
  - Anxiety [Recovered/Resolved]
  - Eye haemorrhage [Recovered/Resolved]
